FAERS Safety Report 13056330 (Version 1)
Quarter: 2016Q4

REPORT INFORMATION
  Report Type: Other
  Country: US (occurrence: US)
  Receive Date: 20161222
  Receipt Date: 20161222
  Transmission Date: 20170207
  Serious: No
  Sender: FDA-Public Use
  Company Number: US-TRIS PHARMA, INC.-1061211

PATIENT
  Sex: Male

DRUGS (1)
  1. DEXTROMETHORPHAN POLISTIREX ER OS [Suspect]
     Active Substance: DEXTROMETHORPHAN HYDROBROMIDE

REACTIONS (2)
  - Eye discharge [None]
  - Vision blurred [None]
